FAERS Safety Report 7153527-6 (Version None)
Quarter: 2010Q4

REPORT INFORMATION
  Report Type: 
  Country: None (occurrence: None)
  Receive Date: 20101213
  Receipt Date: 20101102
  Transmission Date: 20110411
  Serious: No
  Sender: FDA-Public Use
  Company Number: US-JNJFOC-20101101589

PATIENT
  Sex: Male
  Weight: 92.53 kg

DRUGS (6)
  1. INVEGA SUSTENNA [Suspect]
     Indication: SCHIZOPHRENIA
     Dosage: 156 MG TO 234 MG
     Route: 030
  2. CLONAZEPAM [Concomitant]
     Indication: INSOMNIA
     Dosage: 4 TO 5 TABLETS
     Route: 048
  3. CLONAZEPAM [Concomitant]
     Indication: RESTLESSNESS
     Dosage: 4 TO 5 TABLETS
     Route: 048
  4. PROPRANOLOL [Concomitant]
     Indication: AGITATION
     Route: 048
  5. BENZTROPINE MESYLATE [Concomitant]
     Indication: AGITATION
     Route: 048
  6. AMBIEN [Concomitant]
     Indication: INSOMNIA

REACTIONS (5)
  - AGGRESSION [None]
  - BLOOD CHOLESTEROL INCREASED [None]
  - LOGORRHOEA [None]
  - RED BLOOD CELL COUNT DECREASED [None]
  - WHITE BLOOD CELL COUNT INCREASED [None]
